FAERS Safety Report 9855365 (Version 1)
Quarter: 2014Q1

REPORT INFORMATION
  Report Type: Report from Study
  Country: FR (occurrence: FR)
  Receive Date: 20140130
  Receipt Date: 20140130
  Transmission Date: 20141002
  Serious: Yes (Hospitalization, Disabling, Other)
  Sender: FDA-Public Use
  Company Number: FR-PFIZER INC-2014022151

PATIENT
  Age: 39 Year
  Sex: Male

DRUGS (1)
  1. CRIZOTINIB [Suspect]
     Indication: BRONCHIAL CARCINOMA
     Dosage: 250 MG, 2X/DAY
     Route: 048
     Dates: start: 201111

REACTIONS (2)
  - Renal cyst [Not Recovered/Not Resolved]
  - Renal failure [Unknown]
